FAERS Safety Report 14443964 (Version 1)
Quarter: 2018Q1

REPORT INFORMATION
  Report Type: Spontaneous
  Country: US (occurrence: US)
  Receive Date: 20180125
  Receipt Date: 20180125
  Transmission Date: 20180509
  Serious: Yes (Other)
  Sender: FDA-Public Use
  Company Number: None

PATIENT
  Sex: Male
  Weight: 111.6 kg

DRUGS (9)
  1. GLUCOSAMINE/CHONDROITIN/MSM [Concomitant]
  2. ZEACANTHIN [Concomitant]
  3. COUGH DM [Suspect]
     Active Substance: DEXTROMETHORPHAN HYDROBROMIDE
     Indication: COUGH
     Dosage: ?          QUANTITY:10 MILLILITERS;?
     Route: 048
     Dates: start: 20180124, end: 20180125
  4. VITAMIN C [Concomitant]
     Active Substance: ASCORBIC ACID
  5. VITAMIN E [Concomitant]
     Active Substance: .ALPHA.-TOCOPHEROL
  6. LUTEIN [Concomitant]
     Active Substance: LUTEIN
  7. SENIOR MULTI-VITAMIN [Concomitant]
  8. CALCIUM [Concomitant]
     Active Substance: CALCIUM
  9. SAW PALMETTO [Concomitant]
     Active Substance: HERBALS\SAW PALMETTO

REACTIONS (6)
  - Pyrexia [None]
  - Oropharyngeal pain [None]
  - Middle insomnia [None]
  - Laryngeal disorder [None]
  - Nasopharyngitis [None]
  - Dysphagia [None]

NARRATIVE: CASE EVENT DATE: 20180125
